FAERS Safety Report 6052775-6 (Version None)
Quarter: 2009Q1

REPORT INFORMATION
  Report Type: 
  Country: None (occurrence: None)
  Receive Date: 20090121
  Receipt Date: 20090109
  Transmission Date: 20090719
  Serious: Yes (Other)
  Sender: FDA-Public Use
  Company Number: 2008US002963

PATIENT
  Age: 68 Year
  Sex: Female

DRUGS (10)
  1. LEXISCAN [Suspect]
     Indication: SCAN MYOCARDIAL PERFUSION
     Dosage: 0.4 MG, UID/QD, IV NOS
     Route: 042
     Dates: start: 20081023, end: 20081023
  2. PRILOSEC [Concomitant]
  3. LEVOTHYROXINE SODIUM [Concomitant]
  4. FELODIPINE [Concomitant]
  5. HYDROCHLOROTHIAZIDE [Concomitant]
  6. LISINOPRIL (LISINOPRIL DIHYDRATE) [Concomitant]
  7. LOVASTATIN [Concomitant]
  8. FLUOXETINE HCL [Concomitant]
  9. XOPENEX [Concomitant]
  10. ALBUTEROL (SALBUTAMOL SULFATE) [Concomitant]

REACTIONS (7)
  - ANXIETY [None]
  - APHASIA [None]
  - EYELID DISORDER [None]
  - FEELING ABNORMAL [None]
  - IMMEDIATE POST-INJECTION REACTION [None]
  - LOSS OF CONSCIOUSNESS [None]
  - NAUSEA [None]
